FAERS Safety Report 9365753 (Version 1)
Quarter: 2013Q2

REPORT INFORMATION
  Report Type: Spontaneous
  Country: US (occurrence: US)
  Receive Date: 20130625
  Receipt Date: 20130625
  Transmission Date: 20140414
  Serious: No
  Sender: FDA-Public Use
  Company Number: US-BAYER-2013-074708

PATIENT
  Age: 29 Year
  Sex: Female

DRUGS (2)
  1. GADAVIST [Suspect]
     Indication: NUCLEAR MAGNETIC RESONANCE IMAGING BRAIN
     Dosage: 6 CC^S AT 2 CC^S/SEC
     Route: 042
     Dates: start: 20130605, end: 20130605
  2. GADAVIST [Suspect]
     Indication: BRAIN NEOPLASM

REACTIONS (3)
  - Nausea [None]
  - Cough [None]
  - Dyspnoea [None]
